FAERS Safety Report 10796628 (Version 1)
Quarter: 2015Q1

REPORT INFORMATION
  Report Type: Spontaneous
  Country: US (occurrence: US)
  Receive Date: 20150216
  Receipt Date: 20150216
  Transmission Date: 20150721
  Serious: No
  Sender: FDA-Public Use
  Company Number: US-009507513-1502USA006934

PATIENT
  Age: 69 Year
  Sex: Female

DRUGS (1)
  1. ZETIA [Suspect]
     Active Substance: EZETIMIBE
     Indication: DRUG INTOLERANCE
     Dosage: 10 MG, QD
     Route: 048
     Dates: start: 20150206

REACTIONS (4)
  - Asthenia [Unknown]
  - Myalgia [Unknown]
  - Mouth ulceration [Unknown]
  - Dizziness [Unknown]

NARRATIVE: CASE EVENT DATE: 201502
